FAERS Safety Report 13592981 (Version 6)
Quarter: 2019Q1

REPORT INFORMATION
  Report Type: Spontaneous
  Country: DE (occurrence: DE)
  Receive Date: 20170530
  Receipt Date: 20190104
  Transmission Date: 20190417
  Serious: Yes (Death, Hospitalization, Other)
  Sender: FDA-Public Use
  Company Number: PHHY2017DE078562

PATIENT

DRUGS (24)
  1. ELIQUIS [Concomitant]
     Active Substance: APIXABAN
     Indication: ATRIAL FIBRILLATION
     Dosage: 1 DF, BID
     Route: 048
     Dates: start: 201703
  2. LOSARGAMMA [Concomitant]
     Indication: PRODUCT USED FOR UNKNOWN INDICATION
     Dosage: 2 DF, UNK (2UG?L)
     Route: 065
  3. METOPROLOL. [Concomitant]
     Active Substance: METOPROLOL
     Indication: ATRIAL TACHYCARDIA
     Dosage: 1 DF, QD
     Route: 048
     Dates: start: 201703
  4. INEGY [Concomitant]
     Active Substance: EZETIMIBE\SIMVASTATIN
     Indication: HYPERLIPIDAEMIA
     Dosage: 1 DF, UNK
     Route: 048
  5. ALLOPURINOL. [Concomitant]
     Active Substance: ALLOPURINOL
     Indication: PRODUCT USED FOR UNKNOWN INDICATION
     Dosage: 1 DF, QD
     Route: 048
  6. METOPROLOL. [Concomitant]
     Active Substance: METOPROLOL
     Dosage: DAILY DOSE: 190 MG MILLIGRAM(S) EVERY DAY
     Route: 048
  7. TOREM [Suspect]
     Active Substance: TORSEMIDE
     Indication: CARDIAC FAILURE
     Dosage: 10 MG, BID
     Route: 048
  8. METOPROLOL. [Concomitant]
     Active Substance: METOPROLOL
     Dosage: 190 MG, QD
     Route: 048
  9. ELIQUIS [Concomitant]
     Active Substance: APIXABAN
     Indication: ATRIAL THROMBOSIS
     Dosage: 10 MG, QD
     Route: 048
  10. ELIQUIS [Concomitant]
     Active Substance: APIXABAN
     Indication: INTERNATIONAL NORMALISED RATIO ABNORMAL
     Dosage: DAILY DOSE: 10 MG MILLIGRAM(S) EVERY DAY
     Route: 048
  11. SPIRONOLACTON 1A PHARMA [Concomitant]
     Indication: CARDIAC FAILURE
     Dosage: 1 DF, QD (50MG, QD)
     Route: 048
  12. METFORMIN [Concomitant]
     Active Substance: METFORMIN HYDROCHLORIDE
     Indication: TYPE 2 DIABETES MELLITUS
     Dosage: 1 DF, BID
     Route: 048
  13. METFORMIN [Concomitant]
     Active Substance: METFORMIN HYDROCHLORIDE
     Dosage: DAILY DOSE: 1700 MG MILLIGRAM(S) EVERY DAY
     Route: 048
  14. ALLOPURINOL. [Concomitant]
     Active Substance: ALLOPURINOL
     Route: 048
  15. METOPROLOL BIOEQ PHARMA [Concomitant]
     Indication: ATRIAL FIBRILLATION
     Dosage: 190 MG, QD
     Route: 048
  16. BETA-ACETYLDIGOXIN [Concomitant]
     Active Substance: .BETA.-ACETYLDIGOXIN
     Indication: ATRIAL FIBRILLATION
     Dosage: 0.2 MG, QD
     Route: 048
  17. NOVODIGAL [Concomitant]
     Indication: ATRIAL FIBRILLATION
     Dosage: 1 DF, QD
     Route: 048
  18. TOREM [Suspect]
     Active Substance: TORSEMIDE
     Dosage: 20 MG, QD
     Route: 048
  19. TOREM [Suspect]
     Active Substance: TORSEMIDE
     Dosage: DAILY DOSE: 20 MG MILLIGRAM(S) EVERY DAY
     Route: 048
  20. METOPROLOL BIOEQ PHARMA [Concomitant]
     Indication: TACHYCARDIA
  21. ENTRESTO [Suspect]
     Active Substance: SACUBITRIL\VALSARTAN
     Indication: CARDIAC FAILURE
     Dosage: 50 MG (24/26 MG), BID
     Route: 048
     Dates: start: 20170425
  22. METFORMIN [Concomitant]
     Active Substance: METFORMIN HYDROCHLORIDE
     Dosage: 1700 MG, QD
     Route: 048
  23. ISOMIN [Concomitant]
     Indication: ANGINA PECTORIS
     Dosage: 1 DF, QD
     Route: 048
  24. BETA-ACETYLDIGOXIN [Concomitant]
     Active Substance: .BETA.-ACETYLDIGOXIN
     Dosage: DAILY DOSE: 0.2 MG MILLIGRAM(S) EVERY DAY
     Route: 048

REACTIONS (17)
  - Nausea [Unknown]
  - Cardiac arrest [Fatal]
  - Metabolic acidosis [Fatal]
  - General physical health deterioration [Unknown]
  - Mucosal dryness [Unknown]
  - Vomiting [Unknown]
  - Diarrhoea [Fatal]
  - Oedema peripheral [Unknown]
  - Acute kidney injury [Fatal]
  - Anuria [Fatal]
  - Pallor [Unknown]
  - Orthopnoea [Unknown]
  - Troponin I increased [Unknown]
  - Sudden cardiac death [Fatal]
  - Acute myocardial infarction [Unknown]
  - Tachypnoea [Unknown]
  - Syncope [Unknown]

NARRATIVE: CASE EVENT DATE: 20170501
